FAERS Safety Report 8834068 (Version 1)
Quarter: 2012Q4

REPORT INFORMATION
  Report Type: Spontaneous
  Country: US (occurrence: None)
  Receive Date: 20121011
  Receipt Date: 20121011
  Transmission Date: 20130627
  Serious: Yes (Death, Life-Threatening, Hospitalization, Disabling)
  Sender: FDA-Public Use
  Company Number: None

PATIENT
  Age: 42 Year
  Sex: Female
  Weight: 84.37 kg

DRUGS (4)
  1. METHYLPREDNISOLONE [Suspect]
     Indication: FIBROMYALGIA
     Dosage: 6 vials 2 IM
     Route: 030
     Dates: start: 20120620, end: 20120620
  2. METHYLPREDNISOLONE [Suspect]
     Indication: ARTHRITIS
     Dosage: 6 vials 2 IM
     Route: 030
     Dates: start: 20120620, end: 20120620
  3. METHYLPREDNISOLONE [Suspect]
     Indication: FIBROMYALGIA
     Dates: start: 20120702, end: 20120702
  4. METHYLPREDNISOLONE [Suspect]
     Indication: ARTHRITIS
     Dates: start: 20120702, end: 20120702

REACTIONS (8)
  - Product contamination microbial [None]
  - Blister [None]
  - Scab [None]
  - Skin disorder [None]
  - Acne [None]
  - Ingrown hair [None]
  - Scratch [None]
  - Skin exfoliation [None]
